FAERS Safety Report 4536670-7 (Version None)
Quarter: 2004Q4

REPORT INFORMATION
  Report Type: 
  Country: None (occurrence: None)
  Receive Date: 20041220
  Receipt Date: 20041210
  Transmission Date: 20050328
  Serious: Yes (Disabling, Other)
  Sender: FDA-Public Use
  Company Number: 2004087791

PATIENT
  Age: 61 Year
  Sex: Male

DRUGS (14)
  1. GABAPENTIN [Suspect]
     Indication: ILL-DEFINED DISORDER
     Dates: end: 20020101
  2. CYCLOSPORINE [Concomitant]
  3. DIGOXIN [Concomitant]
  4. OMEPRAZOLE [Concomitant]
  5. AMITRIPTYLINE HCL [Concomitant]
  6. BUMETANIDE [Concomitant]
  7. LISINOPRIL [Concomitant]
  8. ATORVASTATIN (ATORVASTATIN) [Concomitant]
  9. ACYCLOVIR [Concomitant]
  10. PREDNISOLONE [Concomitant]
  11. ALLOPURINOL [Concomitant]
  12. MYCOPHENOLATE MOFETIL (MYCOPHENOLATE MOFETIL) [Concomitant]
  13. SPIRONOLACTONE [Concomitant]
  14. BISOPROLOL (BISOPROLOL) [Concomitant]

REACTIONS (2)
  - LOSS OF CONSCIOUSNESS [None]
  - ORTHOSTATIC HYPOTENSION [None]
